FAERS Safety Report 20654849 (Version 2)
Quarter: 2022Q2

REPORT INFORMATION
  Report Type: Spontaneous
  Country: JP (occurrence: JP)
  Receive Date: 20220330
  Receipt Date: 20220407
  Transmission Date: 20220721
  Serious: Yes (Other)
  Sender: FDA-Public Use
  Company Number: JP-BAYER-2022A043596

PATIENT
  Age: 89 Year
  Sex: Male
  Weight: 58 kg

DRUGS (2)
  1. RIVAROXABAN [Suspect]
     Active Substance: RIVAROXABAN
     Indication: Atrial fibrillation
     Dosage: 10 MG, QD
     Route: 048
     Dates: start: 202202
  2. RIVAROXABAN [Suspect]
     Active Substance: RIVAROXABAN
     Indication: Lacunar infarction
     Route: 048

REACTIONS (4)
  - Faecaloma [Unknown]
  - Dyspnoea [Unknown]
  - Abdominal discomfort [Unknown]
  - Inappropriate schedule of product administration [Unknown]

NARRATIVE: CASE EVENT DATE: 20220323
